FAERS Safety Report 10911502 (Version 1)
Quarter: 2015Q1

REPORT INFORMATION
  Report Type: Spontaneous
  Country: US (occurrence: US)
  Receive Date: 20150313
  Receipt Date: 20150313
  Transmission Date: 20150721
  Serious: Yes (Other)
  Sender: FDA-Public Use
  Company Number: US-JNJFOC-20141003830

PATIENT
  Sex: Male
  Weight: 72.58 kg

DRUGS (5)
  1. LOSARTAN [Concomitant]
     Active Substance: LOSARTAN
     Indication: PRODUCT USED FOR UNKNOWN INDICATION
     Route: 065
  2. VITAMINS NOS [Concomitant]
     Active Substance: VITAMINS
     Indication: PRODUCT USED FOR UNKNOWN INDICATION
     Route: 065
  3. LUBRIDERM DAILY MOISTURIZER WITH SUNSCREEN SPF15 [Suspect]
     Active Substance: AVOBENZONE\OCTISALATE\OCTOCRYLENE\OXYBENZONE
     Indication: DRY SKIN
     Dosage: APPLIED LIBERALLY; DAILY.
     Route: 061
  4. SIMVASTATIN. [Concomitant]
     Active Substance: SIMVASTATIN
     Indication: PRODUCT USED FOR UNKNOWN INDICATION
     Route: 065
  5. ASPIRIN. [Concomitant]
     Active Substance: ASPIRIN
     Indication: PRODUCT USED FOR UNKNOWN INDICATION
     Route: 065

REACTIONS (3)
  - Pain [Recovered/Resolved]
  - Product physical consistency issue [Unknown]
  - Pruritus [Recovered/Resolved]
